FAERS Safety Report 9162626 (Version 4)
Quarter: 2013Q2

REPORT INFORMATION
  Report Type: Report from Study
  Country: US (occurrence: US)
  Receive Date: 20130314
  Receipt Date: 20130605
  Transmission Date: 20140414
  Serious: No
  Sender: FDA-Public Use
  Company Number: US-VERTEX PHARMACEUTICALS INC.-2013-003439

PATIENT
  Age: 60 Year
  Sex: Female
  Weight: 139 kg

DRUGS (16)
  1. VX-950 (TELAPREVIR) [Suspect]
     Indication: HEPATITIS C
     Dosage: 750 MG, TID
     Route: 048
     Dates: start: 20130221
  2. RIBAVIRIN [Suspect]
     Indication: HEPATITIS C
     Dosage: 1200 MG, QD
     Dates: start: 20130221
  3. RIBAVIRIN [Suspect]
     Dosage: 600 MG, QD
     Dates: start: 20130416
  4. PEGASYS [Suspect]
     Indication: HEPATITIS C
     Dosage: 180 ?G, QW
     Route: 058
     Dates: start: 20130221
  5. LEVOTHYROXINE [Concomitant]
     Dosage: 133 ?G, QD
  6. NEXIUM [Concomitant]
     Dosage: 20 MG, BID
     Route: 048
  7. PROZAC [Concomitant]
     Dosage: 20 MG, QD
  8. CLORAZEPATE [Concomitant]
     Dosage: 7.5 ?G, BID
  9. DARVOCET [Concomitant]
     Dosage: UNK, PRN
  10. FOSAMAX [Concomitant]
  11. OMEPRAZOLE [Concomitant]
  12. CRESTOR [Concomitant]
     Dosage: 40 MG, UNK
  13. BABY ASPIRIN [Concomitant]
     Dosage: UNK
  14. DICLOFENAC [Concomitant]
     Dosage: 75 MG, QD
  15. TRAMADOL [Concomitant]
     Dosage: 50 MG, PRN
  16. CLONAZEPAM [Concomitant]
     Dosage: 0.5 MG, PRN

REACTIONS (10)
  - White blood cell count decreased [Not Recovered/Not Resolved]
  - Dyspnoea [Not Recovered/Not Resolved]
  - Weight decreased [Not Recovered/Not Resolved]
  - Mood altered [Recovered/Resolved]
  - Fatigue [Not Recovered/Not Resolved]
  - Blood thyroid stimulating hormone increased [Not Recovered/Not Resolved]
  - Local swelling [Not Recovered/Not Resolved]
  - Anaemia [Not Recovered/Not Resolved]
  - Platelet count decreased [Not Recovered/Not Resolved]
  - Nausea [Not Recovered/Not Resolved]
